FAERS Safety Report 10178019 (Version 1)
Quarter: 2014Q2

REPORT INFORMATION
  Report Type: Spontaneous
  Country: GB (occurrence: GB)
  Receive Date: 20140517
  Receipt Date: 20140517
  Transmission Date: 20141212
  Serious: Yes (Other)
  Sender: FDA-Public Use
  Company Number: GB-ACCORD-023635

PATIENT
  Age: 48 Year
  Sex: Female

DRUGS (2)
  1. TRAMADOL/TRAMADOL HYDROCHLORIDE [Suspect]
     Indication: PRODUCT USED FOR UNKNOWN INDICATION
  2. MIRTAZAPINE [Concomitant]
     Indication: DEPRESSION
     Dosage: CONTINUED
     Dates: start: 2012

REACTIONS (3)
  - Headache [Recovering/Resolving]
  - Drug dispensing error [Unknown]
  - Malaise [Recovering/Resolving]
